FAERS Safety Report 6044818-0 (Version None)
Quarter: 2009Q1

REPORT INFORMATION
  Report Type: 
  Country: None (occurrence: None)
  Receive Date: 20090120
  Receipt Date: 20090115
  Transmission Date: 20090719
  Serious: Yes (Hospitalization)
  Sender: FDA-Public Use
  Company Number: JP-ASTRAZENECA-2008AP07190

PATIENT
  Age: 31264 Day
  Sex: Female
  Weight: 42 kg

DRUGS (7)
  1. CRESTOR [Suspect]
     Indication: HYPERCHOLESTEROLAEMIA
     Route: 048
     Dates: start: 20061030, end: 20070416
  2. ITOROL [Concomitant]
     Indication: ANGINA PECTORIS
     Route: 048
  3. ASPIRIN [Concomitant]
     Indication: ANGINA PECTORIS
     Route: 048
  4. SIGMART [Concomitant]
     Indication: ANGINA PECTORIS
     Dosage: NUMBER OF SEPARATE DOSAGES UNKNOWN
     Route: 048
  5. BAYMYCARD [Concomitant]
     Indication: ANGINA PECTORIS
     Route: 048
  6. FRANDOL [Concomitant]
     Indication: ANGINA PECTORIS
     Dosage: NUMBER OF SEPARATE DOSAGES UNKNOWN
     Route: 062
  7. LAC-B [Concomitant]
     Indication: ENTEROCOLITIS
     Dosage: NUMBER OF SEPARATE DOSAGES UNKNOWN
     Route: 048

REACTIONS (1)
  - ENTEROCOLITIS [None]
